FAERS Safety Report 12365719 (Version 5)
Quarter: 2016Q3

REPORT INFORMATION
  Report Type: Report from Study
  Country: US (occurrence: US)
  Receive Date: 20160513
  Receipt Date: 20160808
  Transmission Date: 20161109
  Serious: Yes (Hospitalization, Other)
  Sender: FDA-Public Use
  Company Number: US-BAYER-2016-017724

PATIENT
  Age: 65 Year
  Sex: Male
  Weight: 45.81 kg

DRUGS (14)
  1. XARELTO [Concomitant]
     Active Substance: RIVAROXABAN
     Indication: PULMONARY EMBOLISM
     Dosage: 15 MG, BID X 3 WEEKS
     Dates: start: 20160427
  2. DIGOXIN. [Concomitant]
     Active Substance: DIGOXIN
     Indication: PULMONARY HYPERTENSION
     Dosage: 125 ?G, Q48 HRS
  3. ZINC [Concomitant]
     Active Substance: ZINC\ZINC CHLORIDE
     Dosage: 220 PER DAY
  4. MULTIVITAMIN [Concomitant]
     Active Substance: VITAMINS
  5. ADEMPAS [Suspect]
     Active Substance: RIOCIGUAT
     Indication: PULMONARY ARTERIAL HYPERTENSION
     Dosage: UNK
     Route: 048
     Dates: start: 20160115
  6. XARELTO [Concomitant]
     Active Substance: RIVAROXABAN
     Indication: PULMONARY EMBOLISM
  7. MIRTAZAPINE. [Concomitant]
     Active Substance: MIRTAZAPINE
     Indication: DECREASED APPETITE
     Dosage: UNK
  8. ADEMPAS [Suspect]
     Active Substance: RIOCIGUAT
     Indication: PULMONARY ARTERIAL HYPERTENSION
     Dosage: 1.0 MG, TID
     Route: 048
     Dates: end: 201607
  9. VITAMIN D2 [Concomitant]
     Active Substance: ERGOCALCIFEROL
     Dosage: Q WEEK X 8 WEEKS
  10. COZAAR [Concomitant]
     Active Substance: LOSARTAN POTASSIUM
     Dosage: UNK
  11. MONTELUKAST [Concomitant]
     Active Substance: MONTELUKAST SODIUM
     Indication: ASTHMA
     Dosage: UNK UNK, PRN
  12. ACETYLCYSTEINE. [Concomitant]
     Active Substance: ACETYLCYSTEINE
  13. ADEMPAS [Suspect]
     Active Substance: RIOCIGUAT
     Indication: PULMONARY ARTERIAL HYPERTENSION
     Dosage: 1.5 MG, TID
     Route: 048
  14. METOPROLOL. [Concomitant]
     Active Substance: METOPROLOL
     Dosage: 25 MG, QD

REACTIONS (18)
  - Mycobacterial infection [None]
  - Dyspnoea [None]
  - Dyspnoea [None]
  - Blood pressure decreased [None]
  - Pneumonia bacterial [None]
  - Psoriasis [None]
  - Dyspnoea exertional [None]
  - Bronchiectasis [None]
  - Mobility decreased [None]
  - Drug dose omission [None]
  - Hypotension [Unknown]
  - Oedema [None]
  - Lung disorder [None]
  - Pulmonary mass [None]
  - Dizziness [None]
  - Hospitalisation [Not Recovered/Not Resolved]
  - Mycetoma mycotic [None]
  - Hypotension [None]

NARRATIVE: CASE EVENT DATE: 20160421
